FAERS Safety Report 9522498 (Version 1)
Quarter: 2013Q3

REPORT INFORMATION
  Report Type: Report from Study
  Country: US (occurrence: US)
  Receive Date: 20130913
  Receipt Date: 20130913
  Transmission Date: 20140515
  Serious: Yes (Other)
  Sender: FDA-Public Use
  Company Number: US-ROCHE-1272756

PATIENT
  Sex: Male

DRUGS (2)
  1. LUCENTIS [Suspect]
     Indication: RETINAL VEIN OCCLUSION
     Dosage: LEFT EYE
     Route: 050
  2. ASPIRIN [Concomitant]
     Route: 065

REACTIONS (5)
  - Visual field defect [Unknown]
  - Vitreous floaters [Unknown]
  - Photopsia [Unknown]
  - Metamorphopsia [Unknown]
  - Eye pain [Unknown]
